FAERS Safety Report 17267536 (Version 1)
Quarter: 2020Q1

REPORT INFORMATION
  Report Type: Spontaneous
  Country: US (occurrence: US)
  Receive Date: 20191220
  Receipt Date: 20191220
  Transmission Date: 20200409
  Serious: Yes (Other)
  Sender: FDA-Public Use
  Company Number: None

PATIENT
  Age: 52 Year
  Sex: Male
  Weight: 81.65 kg

DRUGS (1)
  1. GLATIRAMER 40MG/ML [Suspect]
     Active Substance: GLATIRAMER
     Indication: MULTIPLE SCLEROSIS
     Route: 058
     Dates: start: 201910

REACTIONS (5)
  - Injection site pain [None]
  - Psoriasis [None]
  - Injection site swelling [None]
  - Injection site erythema [None]
  - Product substitution issue [None]
